FAERS Safety Report 7347263-0 (Version None)
Quarter: 2011Q1

REPORT INFORMATION
  Report Type: 
  Country: None (occurrence: None)
  Receive Date: 20110311
  Receipt Date: 20101209
  Transmission Date: 20110831
  Serious: No
  Sender: FDA-Public Use
  Company Number: US-PFIZER INC-2010163298

PATIENT
  Sex: Female
  Weight: 58.957 kg

DRUGS (1)
  1. DIFLUCAN [Suspect]
     Indication: FUNGAL INFECTION
     Dosage: UNK
     Route: 048
     Dates: start: 20100928, end: 20100929

REACTIONS (3)
  - CHEILITIS [None]
  - LIP SWELLING [None]
  - LIP PAIN [None]
